FAERS Safety Report 20298777 (Version 1)
Quarter: 2022Q1

REPORT INFORMATION
  Report Type: Spontaneous
  Country: US (occurrence: US)
  Receive Date: 20220105
  Receipt Date: 20220105
  Transmission Date: 20220423
  Serious: No
  Sender: FDA-Public Use
  Company Number: US-009507513-2201USA000077

PATIENT
  Age: 52 Year
  Sex: Male

DRUGS (24)
  1. RECARBRIO [Suspect]
     Active Substance: CILASTATIN\IMIPENEM ANHYDROUS\RELEBACTAM ANHYDROUS
     Indication: Lower respiratory tract infection
     Dosage: 500 MILLIGRAM, EVERY 6 HOURS
  2. RECARBRIO [Suspect]
     Active Substance: CILASTATIN\IMIPENEM ANHYDROUS\RELEBACTAM ANHYDROUS
     Indication: Pneumonia
  3. RECARBRIO [Suspect]
     Active Substance: CILASTATIN\IMIPENEM ANHYDROUS\RELEBACTAM ANHYDROUS
     Indication: Bacteraemia
  4. RECARBRIO [Suspect]
     Active Substance: CILASTATIN\IMIPENEM ANHYDROUS\RELEBACTAM ANHYDROUS
     Indication: Systemic candida
  5. RECARBRIO [Suspect]
     Active Substance: CILASTATIN\IMIPENEM ANHYDROUS\RELEBACTAM ANHYDROUS
     Indication: Staphylococcal infection
  6. RECARBRIO [Suspect]
     Active Substance: CILASTATIN\IMIPENEM ANHYDROUS\RELEBACTAM ANHYDROUS
     Indication: Endocarditis
  7. RECARBRIO [Suspect]
     Active Substance: CILASTATIN\IMIPENEM ANHYDROUS\RELEBACTAM ANHYDROUS
     Indication: Enterobacter infection
  8. RECARBRIO [Suspect]
     Active Substance: CILASTATIN\IMIPENEM ANHYDROUS\RELEBACTAM ANHYDROUS
     Indication: Burkholderia cepacia complex infection
  9. CEFIDEROCOL [Concomitant]
     Active Substance: CEFIDEROCOL
     Indication: Lower respiratory tract infection
  10. CEFIDEROCOL [Concomitant]
     Active Substance: CEFIDEROCOL
     Indication: Pneumonia
  11. CEFIDEROCOL [Concomitant]
     Active Substance: CEFIDEROCOL
     Indication: Bacteraemia
  12. CEFIDEROCOL [Concomitant]
     Active Substance: CEFIDEROCOL
     Indication: Systemic candida
  13. CEFIDEROCOL [Concomitant]
     Active Substance: CEFIDEROCOL
     Indication: Endocarditis
  14. CEFIDEROCOL [Concomitant]
     Active Substance: CEFIDEROCOL
     Indication: Staphylococcal infection
  15. CEFIDEROCOL [Concomitant]
     Active Substance: CEFIDEROCOL
     Indication: Burkholderia cepacia complex infection
  16. CEFIDEROCOL [Concomitant]
     Active Substance: CEFIDEROCOL
     Indication: Enterobacter infection
  17. AVIBACTAM SODIUM\CEFTAZIDIME [Concomitant]
     Active Substance: AVIBACTAM SODIUM\CEFTAZIDIME
     Indication: Burkholderia cepacia complex infection
  18. AVIBACTAM SODIUM\CEFTAZIDIME [Concomitant]
     Active Substance: AVIBACTAM SODIUM\CEFTAZIDIME
     Indication: Enterobacter infection
  19. AVIBACTAM SODIUM\CEFTAZIDIME [Concomitant]
     Active Substance: AVIBACTAM SODIUM\CEFTAZIDIME
     Indication: Endocarditis
  20. AVIBACTAM SODIUM\CEFTAZIDIME [Concomitant]
     Active Substance: AVIBACTAM SODIUM\CEFTAZIDIME
     Indication: Staphylococcal infection
  21. AVIBACTAM SODIUM\CEFTAZIDIME [Concomitant]
     Active Substance: AVIBACTAM SODIUM\CEFTAZIDIME
     Indication: Lower respiratory tract infection
  22. AVIBACTAM SODIUM\CEFTAZIDIME [Concomitant]
     Active Substance: AVIBACTAM SODIUM\CEFTAZIDIME
     Indication: Pneumonia
  23. AVIBACTAM SODIUM\CEFTAZIDIME [Concomitant]
     Active Substance: AVIBACTAM SODIUM\CEFTAZIDIME
     Indication: Bacteraemia
  24. AVIBACTAM SODIUM\CEFTAZIDIME [Concomitant]
     Active Substance: AVIBACTAM SODIUM\CEFTAZIDIME
     Indication: Systemic candida

REACTIONS (1)
  - Off label use [Unknown]
